FAERS Safety Report 15268481 (Version 1)
Quarter: 2018Q3

REPORT INFORMATION
  Report Type: Spontaneous
  Country: US (occurrence: US)
  Receive Date: 20180725
  Receipt Date: 20180725
  Transmission Date: 20181010
  Serious: Yes (Hospitalization)
  Sender: FDA-Public Use
  Company Number: None

PATIENT
  Age: 60 Year
  Sex: Male
  Weight: 54.8 kg

DRUGS (4)
  1. ELOXATIN [Suspect]
     Active Substance: OXALIPLATIN
     Dates: end: 20180614
  2. 5?FLUOROURACIL (5?FU) [Suspect]
     Active Substance: FLUOROURACIL
     Dates: end: 20180614
  3. CAMPTOSAR [Suspect]
     Active Substance: IRINOTECAN HYDROCHLORIDE
     Dates: end: 20180614
  4. LEUCOVORIN CALCIUM. [Suspect]
     Active Substance: LEUCOVORIN CALCIUM
     Dates: end: 20180614

REACTIONS (13)
  - Blood alkaline phosphatase increased [None]
  - Cholelithiasis [None]
  - Cholangitis [None]
  - Nausea [None]
  - Stent malfunction [None]
  - Decreased appetite [None]
  - Blood bilirubin increased [None]
  - Procedural pain [None]
  - Abdominal pain upper [None]
  - Aspartate aminotransferase increased [None]
  - Alanine aminotransferase increased [None]
  - Constipation [None]
  - Biliary dilatation [None]

NARRATIVE: CASE EVENT DATE: 20171201
